FAERS Safety Report 20643682 (Version 1)
Quarter: 2022Q1

REPORT INFORMATION
  Report Type: Report from Study
  Country: AT (occurrence: AT)
  Receive Date: 20220328
  Receipt Date: 20220328
  Transmission Date: 20220423
  Serious: Yes (Hospitalization, Other)
  Sender: FDA-Public Use
  Company Number: AT-ABBVIE-22K-009-4333658-00

PATIENT
  Sex: Female

DRUGS (1)
  1. HUMIRA [Suspect]
     Active Substance: ADALIMUMAB
     Indication: Psoriatic arthropathy
     Route: 058
     Dates: start: 202006, end: 2022

REACTIONS (5)
  - Cyst [Unknown]
  - Breast atrophy [Unknown]
  - Mucosal disorder [Recovered/Resolved]
  - Contusion [Unknown]
  - Gingival disorder [Recovered/Resolved]

NARRATIVE: CASE EVENT DATE: 20220317
